FAERS Safety Report 19403556 (Version 1)
Quarter: 2021Q2

REPORT INFORMATION
  Report Type: Spontaneous
  Country: US (occurrence: US)
  Receive Date: 20210611
  Receipt Date: 20210611
  Transmission Date: 20210717
  Serious: No
  Sender: FDA-Public Use
  Company Number: US-SA-2021SA166924

PATIENT
  Age: 74 Year
  Sex: Male
  Weight: 81.65 kg

DRUGS (4)
  1. TAXOTERE [Suspect]
     Active Substance: DOCETAXEL
     Indication: PROSTATE CANCER
     Dosage: UNK
     Route: 065
     Dates: end: 201912
  2. PFIZER?BIONTECH COVID?19 VACCINE [Suspect]
     Active Substance: TOZINAMERAN
     Dosage: ARM? LEFT? ADMINISTERED APPROXIMATELY ON 1:00 PM ON 07MAY2021 (SECOND DOSE)
     Dates: start: 20210416
  3. PFIZER?BIONTECH COVID?19 VACCINE [Suspect]
     Active Substance: TOZINAMERAN
     Dosage: ARM? LEFT? ADMINISTERED APPROXIMATELY ON 1:00 PM ON 07MAY2021 (SECOND DOSE)
     Dates: start: 20210507
  4. CARBOPLATIN. [Concomitant]
     Active Substance: CARBOPLATIN
     Indication: PROSTATE CANCER

REACTIONS (5)
  - Asthenia [Unknown]
  - Blood testosterone abnormal [Unknown]
  - Chills [Recovering/Resolving]
  - Erythema [Recovering/Resolving]
  - Feeling cold [Recovering/Resolving]

NARRATIVE: CASE EVENT DATE: 20210509
